FAERS Safety Report 8909385 (Version 1)
Quarter: 2012Q4

REPORT INFORMATION
  Report Type: Spontaneous
  Country: TR (occurrence: None)
  Receive Date: 20121109
  Receipt Date: 20121109
  Transmission Date: 20130627
  Serious: Yes (Other)
  Sender: FDA-Public Use
  Company Number: IMP_06056_2012

PATIENT
  Age: 64 Year
  Sex: Female
  Weight: 95 kg

DRUGS (3)
  1. METFORMIN (METFORMIN) [Suspect]
     Indication: DRUG USE FOR UNKNOWN INDICATION
     Dosage: (DF (850 mg/gun] ) , (DF)
  2. COMBINATION LOSARTAN POTASSIUM AND HYDROCHLORIDE (UNKNOWN) [Concomitant]
  3. ACETYLSALICYLIC ACID (UNKNOWN) [Concomitant]

REACTIONS (2)
  - Dystonia [None]
  - Nuclear magnetic resonance imaging brain abnormal [None]
